FAERS Safety Report 7349464-4 (Version None)
Quarter: 2011Q1

REPORT INFORMATION
  Report Type: 
  Country: None (occurrence: None)
  Receive Date: 20110304
  Receipt Date: 20101119
  Transmission Date: 20110831
  Serious: Yes (Death, Hospitalization)
  Sender: FDA-Public Use
  Company Number: JP-20100036

PATIENT
  Age: 66 Year
  Sex: Male

DRUGS (2)
  1. LIPIODOL ULTRA FLUIDE (ETHIODIZED OIL) [Suspect]
     Indication: REGIONAL CHEMOTHERAPY
     Dosage: 7 ML (7 ML, 1 IN 1 D)
     Route: 013
     Dates: start: 20080716, end: 20080716
  2. CISPLATIN [Suspect]
     Indication: REGIONAL CHEMOTHERAPY
     Dosage: 50 MG (50 MG, 1 IN 1 D)
     Route: 013
     Dates: start: 20080716, end: 20080716

REACTIONS (7)
  - ABDOMINAL PAIN UPPER [None]
  - GENERAL PHYSICAL HEALTH DETERIORATION [None]
  - NEOPLASM MALIGNANT [None]
  - METASTASES TO LUNG [None]
  - METASTASES TO BONE MARROW [None]
  - JAUNDICE [None]
  - TUMOUR EMBOLISM [None]
